FAERS Safety Report 7951978-0 (Version None)
Quarter: 2011Q4

REPORT INFORMATION
  Report Type: 
  Country: None (occurrence: None)
  Receive Date: 20111201
  Receipt Date: 20111124
  Transmission Date: 20120403
  Serious: Yes (Other)
  Sender: FDA-Public Use
  Company Number: BE-PFIZER INC-2011287921

PATIENT
  Sex: Male

DRUGS (2)
  1. TOVIAZ [Suspect]
     Route: 048
  2. LITHIUM CARBONATE [Interacting]

REACTIONS (2)
  - DRUG INTERACTION [None]
  - DRUG LEVEL FLUCTUATING [None]
